FAERS Safety Report 8606487-2 (Version None)
Quarter: 2012Q3

REPORT INFORMATION
  Report Type: 
  Country: None (occurrence: None)
  Receive Date: 20120820
  Receipt Date: 20120817
  Transmission Date: 20120928
  Serious: Yes (Hospitalization)
  Sender: FDA-Public Use
  Company Number: PHHY2012PL067682

PATIENT
  Age: 35 Year
  Sex: Female

DRUGS (1)
  1. CAPTOPRIL [Suspect]
     Indication: HYPERTENSION
     Dosage: 75 MG, DAILY

REACTIONS (3)
  - HYPOGLYCAEMIC COMA [None]
  - INSULIN AUTOIMMUNE SYNDROME [None]
  - POLYGLANDULAR AUTOIMMUNE SYNDROME TYPE III [None]
